FAERS Safety Report 20786272 (Version 1)
Quarter: 2022Q2

REPORT INFORMATION
  Report Type: Spontaneous
  Country: US (occurrence: None)
  Receive Date: 20220504
  Receipt Date: 20220504
  Transmission Date: 20220720
  Serious: No
  Sender: FDA-Public Use
  Company Number: US-ROCHE-3014073

PATIENT

DRUGS (3)
  1. OCREVUS [Suspect]
     Active Substance: OCRELIZUMAB
     Indication: Product used for unknown indication
     Route: 065
  2. NAPROXEN [Concomitant]
     Active Substance: NAPROXEN
     Indication: Migraine
  3. EXCEDRIN (UNITED STATES) [Concomitant]
     Indication: Migraine

REACTIONS (11)
  - Influenza like illness [Unknown]
  - Fatigue [Unknown]
  - Chills [Unknown]
  - Myalgia [Unknown]
  - Lymphadenopathy [Unknown]
  - Headache [Unknown]
  - Stomatitis [Unknown]
  - Noninfective gingivitis [Unknown]
  - Rash [Unknown]
  - Rash erythematous [Unknown]
  - Migraine [Unknown]

NARRATIVE: CASE EVENT DATE: 20210601
